FAERS Safety Report 22521492 (Version 1)
Quarter: 2023Q2

REPORT INFORMATION
  Report Type: Spontaneous
  Country: US (occurrence: US)
  Receive Date: 20230605
  Receipt Date: 20230605
  Transmission Date: 20230722
  Serious: No
  Sender: FDA-Public Use
  Company Number: US-Covis Pharma Europe B.V.-2023COV01228

PATIENT
  Age: 68 Year
  Sex: Female

DRUGS (1)
  1. TUDORZA PRESSAIR [Suspect]
     Active Substance: ACLIDINIUM BROMIDE
     Indication: Product used for unknown indication
     Dosage: NDC #: 0310-0800-60 (UNSURE)

REACTIONS (1)
  - Product dose omission issue [Unknown]
